FAERS Safety Report 19570889 (Version 1)
Quarter: 2021Q3

REPORT INFORMATION
  Report Type: Spontaneous
  Country: HU (occurrence: HU)
  Receive Date: 20210716
  Receipt Date: 20210716
  Transmission Date: 20211014
  Serious: Yes (Other)
  Sender: FDA-Public Use
  Company Number: HU-PFIZER INC-2021828012

PATIENT
  Age: 40 Year
  Sex: Female

DRUGS (3)
  1. METHOTREXATE. [Concomitant]
     Active Substance: METHOTREXATE
     Dosage: 15 MG, WEEKLY
     Route: 048
  2. DELAGIL [Concomitant]
     Active Substance: CHLOROQUINE PHOSPHATE
     Dosage: 250 MG, DAILY
  3. RUXIENCE [Suspect]
     Active Substance: RITUXIMAB-PVVR
     Indication: RHEUMATOID ARTHRITIS
     Dosage: 1000 MG, DAILY
     Route: 042
     Dates: start: 20210621, end: 20210621

REACTIONS (5)
  - Oropharyngeal pain [Recovering/Resolving]
  - Rhinorrhoea [Recovered/Resolved]
  - Dyspnoea [Recovering/Resolving]
  - Sensation of foreign body [Recovering/Resolving]
  - Cough [Recovering/Resolving]

NARRATIVE: CASE EVENT DATE: 20210621
